FAERS Safety Report 9220619 (Version 2)
Quarter: 2013Q2

REPORT INFORMATION
  Report Type: Report from Study
  Country: BG (occurrence: BG)
  Receive Date: 20130409
  Receipt Date: 20130418
  Transmission Date: 20140414
  Serious: Yes (Death)
  Sender: FDA-Public Use
  Company Number: BG-ABBOTT-13P-022-1072357-00

PATIENT
  Age: 60 Year
  Sex: Male
  Weight: 70 kg

DRUGS (5)
  1. ZEMPLAR [Suspect]
     Indication: HYPERPARATHYROIDISM SECONDARY
     Route: 048
     Dates: start: 20120404, end: 20130203
  2. ZEMPLAR [Suspect]
     Indication: RENAL FAILURE CHRONIC
  3. FOSINOPRIL [Concomitant]
     Indication: HYPERTENSION
     Route: 048
     Dates: end: 20130203
  4. EPOETIN ALFA [Concomitant]
     Indication: ANAEMIA
     Route: 065
     Dates: end: 20130203
  5. GLICLAZIDE [Concomitant]
     Indication: DIABETES MELLITUS
     Route: 048

REACTIONS (1)
  - Ischaemic stroke [Fatal]
